FAERS Safety Report 11684391 (Version 2)
Quarter: 2016Q2

REPORT INFORMATION
  Report Type: Spontaneous
  Country: US (occurrence: US)
  Receive Date: 20151029
  Receipt Date: 20160527
  Transmission Date: 20160815
  Serious: Yes (Life-Threatening, Hospitalization, Other)
  Sender: FDA-Public Use
  Company Number: US-MDT-ADR-2015-02050

PATIENT
  Age: 19 Year
  Sex: Female

DRUGS (2)
  1. LIORESAL [Suspect]
     Active Substance: BACLOFEN
     Route: 037
  2. LIORESAL [Suspect]
     Active Substance: BACLOFEN
     Route: 037

REACTIONS (4)
  - Respiratory distress [Unknown]
  - Overdose [Unknown]
  - Respiratory tract infection [Unknown]
  - Respiratory arrest [Unknown]

NARRATIVE: CASE EVENT DATE: 20151025
